FAERS Safety Report 6106845-4 (Version None)
Quarter: 2009Q1

REPORT INFORMATION
  Report Type: 
  Country: None (occurrence: None)
  Receive Date: 20090303
  Receipt Date: 20090224
  Transmission Date: 20090719
  Serious: Yes (Hospitalization)
  Sender: FDA-Public Use
  Company Number: 2009AL001125

PATIENT
  Age: 88 Year
  Sex: Female

DRUGS (4)
  1. SPIRONOLACTONE [Suspect]
     Indication: CARDIAC FAILURE CHRONIC
     Dosage: 50 MG; PO
     Route: 048
     Dates: end: 20081120
  2. OLMESARTAN MEDOXOMIL [Concomitant]
  3. FUROSEMIDE [Concomitant]
  4. DIPYRIDAMOLE [Concomitant]

REACTIONS (2)
  - BLOOD POTASSIUM INCREASED [None]
  - MALAISE [None]
